FAERS Safety Report 7506649-1 (Version None)
Quarter: 2011Q2

REPORT INFORMATION
  Report Type: 
  Country: None (occurrence: None)
  Receive Date: 20110526
  Receipt Date: 20110519
  Transmission Date: 20111010
  Serious: Yes (Death)
  Sender: FDA-Public Use
  Company Number: GB-BAXTER-2011BH017222

PATIENT

DRUGS (2)
  1. CYCLOPHOSPHAMIDE [Suspect]
     Indication: PRIMARY IMMUNODEFICIENCY SYNDROME
     Route: 065
  2. TREOSULFAN [Suspect]
     Indication: PRIMARY IMMUNODEFICIENCY SYNDROME
     Route: 065

REACTIONS (2)
  - PULMONARY HYPERTENSION [None]
  - PNEUMONITIS [None]
